FAERS Safety Report 6129026-7 (Version None)
Quarter: 2009Q1

REPORT INFORMATION
  Report Type: 
  Country: None (occurrence: None)
  Receive Date: 20090324
  Receipt Date: 20090311
  Transmission Date: 20090719
  Serious: Yes (Death, Hospitalization)
  Sender: FDA-Public Use
  Company Number: ES-ELI_LILLY_AND_COMPANY-ES200902000654

PATIENT
  Age: 69 Year
  Sex: Female

DRUGS (6)
  1. FORTEO [Suspect]
     Indication: OSTEOPOROSIS
     Dosage: 20 UG, UNKNOWN
     Route: 058
     Dates: start: 20080201
  2. SOMAZINA [Concomitant]
     Dosage: UNK, UNKNOWN
     Route: 065
  3. PRITOR PLUS [Concomitant]
     Dosage: UNK, UNKNOWN
     Route: 065
  4. ANAFRANIL [Concomitant]
     Dosage: UNK, UNKNOWN
     Route: 065
  5. SINEMET [Concomitant]
     Dosage: UNK, UNKNOWN
     Route: 065
  6. CHLORTHALIDONE [Concomitant]
     Dosage: UNK, UNKNOWN
     Route: 065

REACTIONS (4)
  - DEATH [None]
  - FALL [None]
  - MOVEMENT DISORDER [None]
  - UPPER LIMB FRACTURE [None]
